FAERS Safety Report 9725756 (Version 1)
Quarter: 2013Q4

REPORT INFORMATION
  Report Type: Spontaneous
  Country: JP (occurrence: JP)
  Receive Date: 20131203
  Receipt Date: 20131203
  Transmission Date: 20140711
  Serious: Yes (Other)
  Sender: FDA-Public Use
  Company Number: JP-PFIZER INC-2013340841

PATIENT
  Age: 8 Decade
  Sex: Female

DRUGS (3)
  1. EPIRUBICIN HCL [Suspect]
     Indication: BREAST CANCER
     Dosage: UNK
     Dates: start: 201110
  2. ENDOXAN [Suspect]
     Indication: BREAST CANCER
     Dosage: UNK
     Dates: start: 201110
  3. TRASTUZUMAB [Suspect]
     Indication: BREAST CANCER
     Dosage: UNK
     Dates: start: 201110

REACTIONS (2)
  - Drug-induced liver injury [Recovering/Resolving]
  - Hepatitis B DNA increased [Recovering/Resolving]
